FAERS Safety Report 10441421 (Version 1)
Quarter: 2014Q3

REPORT INFORMATION
  Report Type: Spontaneous
  Country: CH (occurrence: CH)
  Receive Date: 20140909
  Receipt Date: 20140909
  Transmission Date: 20150326
  Serious: Yes (Hospitalization, Other)
  Sender: FDA-Public Use
  Company Number: CH-ASTRAZENECA-2014SE65539

PATIENT
  Age: 36 Year
  Sex: Male
  Weight: 100 kg

DRUGS (7)
  1. SEROQUEL [Suspect]
     Active Substance: QUETIAPINE FUMARATE
     Indication: DELUSION
     Route: 048
     Dates: start: 2010, end: 201405
  2. CIPRALEX [Interacting]
     Active Substance: ESCITALOPRAM OXALATE
     Indication: DEPRESSION
     Route: 048
     Dates: start: 201405, end: 20140616
  3. SEROQUEL [Interacting]
     Active Substance: QUETIAPINE FUMARATE
     Indication: DELUSION
     Route: 048
     Dates: start: 201405
  4. TRITTICO [Concomitant]
     Active Substance: TRAZODONE HYDROCHLORIDE
     Indication: INSOMNIA
     Route: 048
     Dates: start: 201404
  5. PANTOZOL [Concomitant]
     Active Substance: PANTOPRAZOLE SODIUM
     Dates: start: 201201
  6. CIPRALEX [Interacting]
     Active Substance: ESCITALOPRAM OXALATE
     Indication: DEPRESSION
     Route: 048
     Dates: start: 20140616, end: 201408
  7. COVERSUM N [Concomitant]
     Active Substance: PERINDOPRIL
     Indication: HYPERTENSION
     Route: 048
     Dates: start: 201201

REACTIONS (5)
  - Drug interaction [Recovering/Resolving]
  - Delusion [Recovering/Resolving]
  - Aggression [Recovering/Resolving]
  - Psychiatric symptom [Recovering/Resolving]
  - Hallucination, visual [Recovering/Resolving]

NARRATIVE: CASE EVENT DATE: 201406
